FAERS Safety Report 25240955 (Version 1)
Quarter: 2025Q2

REPORT INFORMATION
  Report Type: Spontaneous
  Country: US (occurrence: US)
  Receive Date: 20250425
  Receipt Date: 20250425
  Transmission Date: 20250717
  Serious: No
  Sender: PFIZER
  Company Number: US-PFIZER INC-202500085009

PATIENT
  Age: 38 Year
  Sex: Female

DRUGS (1)
  1. PAXLOVID [Suspect]
     Active Substance: NIRMATRELVIR\RITONAVIR
     Indication: COVID-19 treatment
     Dates: start: 20240910, end: 20240910

REACTIONS (24)
  - Burning sensation [Recovering/Resolving]
  - Pyrexia [Recovering/Resolving]
  - Bradycardia [Recovering/Resolving]
  - Eye inflammation [Recovering/Resolving]
  - Tonsillar hypertrophy [Recovering/Resolving]
  - Drug withdrawal syndrome [Recovering/Resolving]
  - Abdominal pain upper [Recovering/Resolving]
  - Dyspepsia [Recovering/Resolving]
  - Diarrhoea [Recovering/Resolving]
  - Vitreous floaters [Recovering/Resolving]
  - Candida infection [Recovering/Resolving]
  - Decreased appetite [Recovering/Resolving]
  - Weight decreased [Recovering/Resolving]
  - Dyspnoea [Recovering/Resolving]
  - Palpitations [Recovering/Resolving]
  - Dizziness [Recovering/Resolving]
  - Headache [Recovering/Resolving]
  - Abnormal dreams [Recovering/Resolving]
  - Nightmare [Recovering/Resolving]
  - Tremor [Recovering/Resolving]
  - Tachyphrenia [Recovering/Resolving]
  - Tinnitus [Recovering/Resolving]
  - Rhinorrhoea [Recovering/Resolving]
  - Productive cough [Recovering/Resolving]

NARRATIVE: CASE EVENT DATE: 20240910
